FAERS Safety Report 15618598 (Version 1)
Quarter: 2018Q4

REPORT INFORMATION
  Report Type: Spontaneous
  Country: CN (occurrence: CN)
  Receive Date: 20181114
  Receipt Date: 20181114
  Transmission Date: 20190205
  Serious: Yes (Hospitalization)
  Sender: FDA-Public Use
  Company Number: CN-JNJFOC-20181111271

PATIENT
  Age: 68 Year
  Sex: Male
  Weight: 70 kg

DRUGS (4)
  1. HALOPERIDOL. [Suspect]
     Active Substance: HALOPERIDOL
     Indication: HYPOKINESIA
     Route: 048
     Dates: start: 201801
  2. HALOPERIDOL. [Suspect]
     Active Substance: HALOPERIDOL
     Indication: HYPERTONIA
     Route: 048
     Dates: start: 201801
  3. AMANTADINE HYDROCHLORIDE W/PARACETAMOL [Suspect]
     Active Substance: ACETAMINOPHEN\AMANTADINE HYDROCHLORIDE
     Indication: UPPER RESPIRATORY TRACT INFECTION
     Route: 048
     Dates: start: 20180120, end: 20180123
  4. MOTILIUM [Suspect]
     Active Substance: DOMPERIDONE
     Indication: DECREASED APPETITE
     Route: 048
     Dates: start: 19980106, end: 20180131

REACTIONS (3)
  - Hypertonia [Recovered/Resolved]
  - Cerebral ischaemia [Unknown]
  - Hypokinesia [Recovered/Resolved]

NARRATIVE: CASE EVENT DATE: 20180123
